FAERS Safety Report 14020141 (Version 1)
Quarter: 2017Q3

REPORT INFORMATION
  Report Type: Report from Study
  Country: None (occurrence: FR)
  Receive Date: 20170928
  Receipt Date: 20170928
  Transmission Date: 20171128
  Serious: Yes (Other)
  Sender: FDA-Public Use
  Company Number: FR-ABBVIE-17P-056-2110792-00

PATIENT
  Age: 62 Year
  Sex: Male

DRUGS (1)
  1. VENETOCLAX. [Suspect]
     Active Substance: VENETOCLAX
     Indication: CHRONIC LYMPHOCYTIC LEUKAEMIA
     Dosage: LAST DOSE OF 400 MG DAILY
     Route: 048
     Dates: start: 201703, end: 20170618

REACTIONS (3)
  - Richter^s syndrome [Unknown]
  - Synovial cyst [Unknown]
  - Disease progression [Unknown]
